FAERS Safety Report 5394343-5 (Version None)
Quarter: 2007Q3

REPORT INFORMATION
  Report Type: 
  Country: None (occurrence: None)
  Receive Date: 20070723
  Receipt Date: 20070525
  Transmission Date: 20080115
  Serious: No
  Sender: FDA-Public Use
  Company Number: A0652997A

PATIENT
  Sex: Male

DRUGS (9)
  1. AVANDIA [Suspect]
     Dosage: 8MG PER DAY
     Route: 048
     Dates: start: 20040101
  2. PRANDIN [Concomitant]
  3. BYETTA [Concomitant]
  4. LIPITOR [Concomitant]
  5. TRICOR [Concomitant]
  6. PRINZIDE [Concomitant]
  7. ALLOPURINOL [Concomitant]
  8. VITAMIN [Concomitant]
  9. TOPROL-XL [Concomitant]

REACTIONS (2)
  - INFLUENZA [None]
  - WEIGHT LOSS POOR [None]
